FAERS Safety Report 8339635-2 (Version None)
Quarter: 2012Q2

REPORT INFORMATION
  Report Type: 
  Country: None (occurrence: None)
  Receive Date: 20120507
  Receipt Date: 20120503
  Transmission Date: 20120825
  Serious: Yes (Other)
  Sender: FDA-Public Use
  Company Number: PHHY2012AU037636

PATIENT
  Sex: Male

DRUGS (1)
  1. ZOLEDRONOC ACID [Suspect]
     Dosage: 5 MG, UNK
     Route: 042
     Dates: start: 20120502

REACTIONS (4)
  - SYNCOPE [None]
  - EYE MOVEMENT DISORDER [None]
  - DYSARTHRIA [None]
  - MEMORY IMPAIRMENT [None]
